FAERS Safety Report 8532619-0 (Version None)
Quarter: 2012Q3

REPORT INFORMATION
  Report Type: 
  Country: None (occurrence: None)
  Receive Date: 20120724
  Receipt Date: 20120712
  Transmission Date: 20120928
  Serious: Yes (Hospitalization, Other)
  Sender: FDA-Public Use
  Company Number: US-BAYER-2012-071675

PATIENT
  Age: 31 Year
  Sex: Female
  Weight: 122.45 kg

DRUGS (5)
  1. LORCET-HD [Concomitant]
     Dosage: 10/325 PRN (AS NEEDED)
     Route: 048
  2. BACTRIM [Concomitant]
     Dosage: UNK UNK, BID
     Route: 048
  3. YASMIN [Suspect]
  4. HYDROCODONE [Concomitant]
  5. XANAX [Concomitant]
     Dosage: [ONE] MG, DAILY
     Route: 048

REACTIONS (2)
  - DEEP VEIN THROMBOSIS [None]
  - CHOLECYSTITIS CHRONIC [None]
